FAERS Safety Report 8838824 (Version 1)
Quarter: 2012Q4

REPORT INFORMATION
  Report Type: 
  Country: GB (occurrence: GB)
  Receive Date: 20121014
  Receipt Date: 20121014
  Transmission Date: 20130627
  Serious: Yes (Life-Threatening, Other)
  Sender: FDA-Public Use
  Company Number: GB-TEVA-363149ISR

PATIENT
  Age: 24 Year
  Sex: Female

DRUGS (3)
  1. METOCLOPRAMIDE [Suspect]
     Indication: VOMITING IN PREGNANCY
     Route: 048
     Dates: start: 20120919, end: 20120922
  2. CYCLIZINE [Concomitant]
  3. VENLAFAXINE [Concomitant]

REACTIONS (1)
  - Anaphylactic reaction [Recovered/Resolved]
